FAERS Safety Report 12807548 (Version 1)
Quarter: 2016Q4

REPORT INFORMATION
  Report Type: Report from Study
  Country: US (occurrence: US)
  Receive Date: 20161004
  Receipt Date: 20161004
  Transmission Date: 20170207
  Serious: No
  Sender: FDA-Public Use
  Company Number: US-AMGEN-USASL2015120670

PATIENT
  Age: 56 Year
  Sex: Female

DRUGS (1)
  1. XGEVA [Suspect]
     Active Substance: DENOSUMAB
     Indication: PRODUCT USED FOR UNKNOWN INDICATION
     Dosage: 120 MG, UNK
     Route: 065
     Dates: start: 201509

REACTIONS (9)
  - Discomfort [Unknown]
  - Paraesthesia oral [Not Recovered/Not Resolved]
  - Hypoaesthesia oral [Not Recovered/Not Resolved]
  - Muscle twitching [Unknown]
  - Tongue biting [Unknown]
  - Paraesthesia [Not Recovered/Not Resolved]
  - Muscle spasms [Unknown]
  - Mouth injury [Unknown]
  - Hypocalcaemia [Unknown]

NARRATIVE: CASE EVENT DATE: 201509
